FAERS Safety Report 23909655 (Version 3)
Quarter: 2025Q1

REPORT INFORMATION
  Report Type: Spontaneous
  Country: US (occurrence: US)
  Receive Date: 20240528
  Receipt Date: 20250317
  Transmission Date: 20250408
  Serious: Yes (Hospitalization, Other)
  Sender: CSL BEHRING
  Company Number: US-BEH-2024172572

PATIENT
  Age: 27 Year
  Sex: Male

DRUGS (1)
  1. CORIFACT [Suspect]
     Active Substance: FACTOR XIII CONCENTRATE (HUMAN)
     Indication: Coagulation factor deficiency
     Dosage: 4000 IU, QMT (EVERY 4 WEEKS)
     Route: 042
     Dates: start: 201301

REACTIONS (6)
  - Haemorrhage intracranial [Unknown]
  - Factor XIII inhibition [Unknown]
  - Haemorrhage [Unknown]
  - Haemorrhage urinary tract [Unknown]
  - Haemorrhage [Unknown]
  - Coagulation factor XIII level decreased [Unknown]

NARRATIVE: CASE EVENT DATE: 20240401
